FAERS Safety Report 14964867 (Version 8)
Quarter: 2020Q3

REPORT INFORMATION
  Report Type: Report from Study
  Country: PA (occurrence: PA)
  Receive Date: 20180601
  Receipt Date: 20200903
  Transmission Date: 20201102
  Serious: Yes (Hospitalization, Other)
  Sender: FDA-Public Use
  Company Number: PHHY2018PA010801

PATIENT
  Age: 67 Year
  Sex: Male

DRUGS (1)
  1. TASIGNA [Suspect]
     Active Substance: NILOTINIB
     Indication: CHRONIC MYELOID LEUKAEMIA
     Dosage: 200 MG
     Route: 065

REACTIONS (13)
  - Influenza [Recovering/Resolving]
  - Vein disorder [Unknown]
  - Gait disturbance [Unknown]
  - Peripheral coldness [Unknown]
  - Wound [Unknown]
  - Visual impairment [Unknown]
  - Cardiovascular insufficiency [Recovering/Resolving]
  - Cataract [Recovering/Resolving]
  - Pain in extremity [Unknown]
  - Peripheral swelling [Unknown]
  - Blindness unilateral [Recovering/Resolving]
  - Vision blurred [Recovering/Resolving]
  - Asthenia [Unknown]
